FAERS Safety Report 5646512-4 (Version None)
Quarter: 2008Q1

REPORT INFORMATION
  Report Type: 
  Country: None (occurrence: None)
  Receive Date: 20080228
  Receipt Date: 20080228
  Transmission Date: 20080703
  Serious: Yes (Hospitalization)
  Sender: FDA-Public Use
  Company Number: None

PATIENT
  Sex: Male
  Weight: 83.9154 kg

DRUGS (4)
  1. HUMULIN 70/30 [Suspect]
     Indication: DIABETES MELLITUS
     Dosage: 30 UNITS QAM AND 15 UNITS QPM  (THERAPY DATES: PRIOR TO ADMISSION)
  2. AVAPRO [Concomitant]
  3. ENALAPRIL MALEATE [Concomitant]
  4. LABETALOL HCL [Concomitant]

REACTIONS (2)
  - TREATMENT NONCOMPLIANCE [None]
  - UNRESPONSIVE TO STIMULI [None]
